FAERS Safety Report 19468840 (Version 1)
Quarter: 2021Q2

REPORT INFORMATION
  Report Type: Spontaneous
  Country: US (occurrence: US)
  Receive Date: 20210628
  Receipt Date: 20210628
  Transmission Date: 20210717
  Serious: Yes (Hospitalization)
  Sender: FDA-Public Use
  Company Number: US-MYLANLABS-2021M1037483

PATIENT
  Age: 72 Year
  Sex: Female

DRUGS (2)
  1. HEPARIN [Suspect]
     Active Substance: HEPARIN SODIUM
     Indication: ANTICOAGULANT THERAPY
     Dosage: 8 UNITS/KG/H
     Route: 042
  2. WARFARIN [Suspect]
     Active Substance: WARFARIN
     Indication: EMBOLISM VENOUS
     Dosage: LONG?TERM WARFARIN THERAPY
     Route: 065

REACTIONS (3)
  - International normalised ratio increased [Recovered/Resolved]
  - Hypocoagulable state [Recovered/Resolved]
  - Drug ineffective [Unknown]
